FAERS Safety Report 9596532 (Version 3)
Quarter: 2014Q2

REPORT INFORMATION
  Report Type: Spontaneous
  Country: US (occurrence: US)
  Receive Date: 20131004
  Receipt Date: 20140509
  Transmission Date: 20141212
  Serious: Yes (Other)
  Sender: FDA-Public Use
  Company Number: US-BAYER-2013-120235

PATIENT
  Age: 30 Year
  Sex: Female
  Weight: 62.13 kg

DRUGS (5)
  1. MIRENA [Suspect]
     Indication: CONTRACEPTION
     Dosage: 20 MCG/24HR, CONT
     Route: 015
     Dates: start: 201001, end: 20130830
  2. CLONAZEPAM [Concomitant]
  3. ORTHO TRI-CYCLEN [Concomitant]
     Indication: DYSMENORRHOEA
     Dosage: 1 TAB DAILY
     Route: 048
  4. KLONOPIN [Concomitant]
     Indication: ANXIETY
  5. ASPIRIN [Concomitant]
     Dosage: 81 MG, UNK

REACTIONS (7)
  - Uterine perforation [None]
  - Injury [None]
  - Emotional distress [None]
  - Pain [None]
  - Depression [None]
  - Anxiety [None]
  - Device issue [None]
